FAERS Safety Report 8131117-6 (Version None)
Quarter: 2012Q1

REPORT INFORMATION
  Report Type: 
  Country: None (occurrence: None)
  Receive Date: 20120209
  Receipt Date: 20120209
  Transmission Date: 20120608
  Serious: Yes (Hospitalization)
  Sender: FDA-Public Use
  Company Number: None

PATIENT
  Sex: Female
  Weight: 59 kg

DRUGS (6)
  1. PROCARDIA XL [Concomitant]
  2. BELATACEPT 250 MG VIALS -BRISTOL-MYERS SQUIBB [Suspect]
     Indication: IMMUNOSUPPRESSION
     Dosage: 5 MG/KG
     Dates: start: 20100211
  3. RAPAMUNE [Concomitant]
  4. PROTONIX [Concomitant]
  5. MULTI-VITAMIN [Concomitant]
  6. METOCLOPRAMIDE [Concomitant]

REACTIONS (3)
  - DRUG LEVEL BELOW THERAPEUTIC [None]
  - KIDNEY TRANSPLANT REJECTION [None]
  - HEADACHE [None]
